FAERS Safety Report 7870471-7 (Version None)
Quarter: 2011Q4

REPORT INFORMATION
  Report Type: 
  Country: None (occurrence: None)
  Receive Date: 20111029
  Receipt Date: 20110216
  Transmission Date: 20120403
  Serious: No
  Sender: FDA-Public Use
  Company Number: US-AMGEN-USASP2011009040

PATIENT
  Sex: Male
  Weight: 70.295 kg

DRUGS (4)
  1. CELEBREX [Concomitant]
     Dosage: 100 MG, UNK
  2. FEBUXOSTAT [Concomitant]
  3. ENBREL [Suspect]
     Indication: PRODUCT USED FOR UNKNOWN INDICATION
     Dosage: 50 MG, QWK
  4. PREDNISONE [Concomitant]
     Dosage: 1 MG, UNK

REACTIONS (1)
  - INFECTION [None]
